FAERS Safety Report 5279898-3 (Version None)
Quarter: 2007Q1

REPORT INFORMATION
  Report Type: 
  Country: None (occurrence: None)
  Receive Date: 20070322
  Receipt Date: 20070315
  Transmission Date: 20070707
  Serious: Yes (Other)
  Sender: FDA-Public Use
  Company Number: 2007-01250

PATIENT
  Age: 57 Year
  Sex: Male

DRUGS (4)
  1. FLUOROURACIL [Suspect]
     Indication: RECTAL CANCER METASTATIC
     Dosage: 500 MG/M2, 1/WEEK X 4, INTRAVENOUS
     Route: 042
     Dates: start: 20060101, end: 20060101
  2. IRINOTECAN HCL [Suspect]
     Indication: RECTAL CANCER METASTATIC
     Dosage: 125 MG/M2, 1/WEEK X 4, INTRAVENOUS
     Route: 042
  3. BEVACIZUMAB (BEVACIZUMAB) [Suspect]
     Indication: RECTAL CANCER METASTATIC
     Dosage: 5 MG/KG, Q 2 WEEKS, UNKNOWN
  4. LEUCOVORIN CALCIUM [Concomitant]

REACTIONS (2)
  - AORTIC EMBOLUS [None]
  - AORTIC THROMBOSIS [None]
